FAERS Safety Report 23260340 (Version 2)
Quarter: 2025Q1

REPORT INFORMATION
  Report Type: Report from Study
  Country: US (occurrence: US)
  Receive Date: 20231204
  Receipt Date: 20250306
  Transmission Date: 20250409
  Serious: Yes (Other)
  Sender: AMGEN
  Company Number: US-AMGEN-USASP2023212658

PATIENT
  Sex: Female

DRUGS (4)
  1. NEULASTA [Suspect]
     Active Substance: PEGFILGRASTIM
     Indication: Cyclic neutropenia
     Dosage: UNK UNK, Q3WK
     Route: 065
  2. NEULASTA [Suspect]
     Active Substance: PEGFILGRASTIM
     Indication: Off label use
  3. NEUPOGEN [Suspect]
     Active Substance: FILGRASTIM
     Indication: Cyclic neutropenia
     Dosage: 480 MICROGRAM, QWK
     Route: 065
     Dates: start: 2014
  4. NEUPOGEN [Suspect]
     Active Substance: FILGRASTIM
     Dosage: 480 MICROGRAM, QWK
     Route: 065

REACTIONS (11)
  - Arthropathy [Unknown]
  - Bone pain [Unknown]
  - Muscle atrophy [Unknown]
  - Infection [Unknown]
  - Overdose [Unknown]
  - Tooth fracture [Unknown]
  - Joint dislocation [Unknown]
  - Tendon disorder [Unknown]
  - Discomfort [Unknown]
  - Pain in jaw [Unknown]
  - Off label use [Unknown]
